FAERS Safety Report 5535007-4 (Version None)
Quarter: 2007Q4

REPORT INFORMATION
  Report Type: 
  Country: None (occurrence: None)
  Receive Date: 20071205
  Receipt Date: 20071129
  Transmission Date: 20080405
  Serious: No
  Sender: FDA-Public Use
  Company Number: JP-MERCK-0711USA02723

PATIENT
  Age: 1 Year
  Sex: Male
  Weight: 11 kg

DRUGS (2)
  1. SINGULAIR [Suspect]
     Indication: ASTHMA
     Route: 048
     Dates: start: 20071009, end: 20071026
  2. HOKUNALIN [Concomitant]
     Route: 061
     Dates: start: 20071009, end: 20071112

REACTIONS (3)
  - ANOREXIA [None]
  - DIARRHOEA [None]
  - VOMITING [None]
